FAERS Safety Report 17900013 (Version 1)
Quarter: 2020Q2

REPORT INFORMATION
  Report Type: Spontaneous
  Country: US (occurrence: US)
  Receive Date: 20200615
  Receipt Date: 20200615
  Transmission Date: 20200714
  Serious: Yes (Disabling)
  Sender: FDA-Public Use
  Company Number: None

PATIENT
  Age: 43 Year
  Sex: Female
  Weight: 59.4 kg

DRUGS (8)
  1. SPIRONALACTONE [Concomitant]
     Active Substance: SPIRONOLACTONE
  2. PLAQUENIL [Concomitant]
     Active Substance: HYDROXYCHLOROQUINE SULFATE
  3. TOPAMAX [Concomitant]
     Active Substance: TOPIRAMATE
  4. VITAMIN D3 [Concomitant]
     Active Substance: CHOLECALCIFEROL
  5. NAPROXEN PRN [Concomitant]
  6. IRON [Concomitant]
     Active Substance: IRON
  7. NP THYROID [Suspect]
     Active Substance: LEVOTHYROXINE\LIOTHYRONINE
     Indication: AUTOIMMUNE THYROIDITIS
     Dosage: ?          QUANTITY:1 TABLET(S);?
     Route: 048
     Dates: start: 20200316
  8. MULTI VITAMIN [Concomitant]
     Active Substance: VITAMINS

REACTIONS (11)
  - Asthenia [None]
  - Dyspnoea [None]
  - Condition aggravated [None]
  - Heart rate abnormal [None]
  - Dysstasia [None]
  - Fatigue [None]
  - Dizziness [None]
  - Balance disorder [None]
  - Impaired work ability [None]
  - Chest pain [None]
  - Temperature intolerance [None]

NARRATIVE: CASE EVENT DATE: 20200515
